FAERS Safety Report 24404708 (Version 1)
Quarter: 2024Q4

REPORT INFORMATION
  Report Type: Spontaneous
  Country: VE (occurrence: VE)
  Receive Date: 20241007
  Receipt Date: 20241007
  Transmission Date: 20250114
  Serious: Yes (Life-Threatening)
  Sender: NOVARTIS
  Company Number: VE-002147023-NVSC2024VE196437

PATIENT
  Sex: Female

DRUGS (1)
  1. GLIVEC [Suspect]
     Active Substance: IMATINIB MESYLATE
     Indication: Chronic myeloid leukaemia
     Dosage: 400 MG (4 X 100MG)
     Route: 065

REACTIONS (5)
  - Haemoglobin decreased [Unknown]
  - Eye irritation [Unknown]
  - Eye swelling [Unknown]
  - Oedema [Unknown]
  - Malaise [Unknown]
